FAERS Safety Report 4851549-9 (Version None)
Quarter: 2005Q4

REPORT INFORMATION
  Report Type: 
  Country: None (occurrence: None)
  Receive Date: 20051212
  Receipt Date: 20051130
  Transmission Date: 20060501
  Serious: Yes (Other)
  Sender: FDA-Public Use
  Company Number: US-ROCHE-427207

PATIENT
  Sex: Male

DRUGS (1)
  1. ACCUTANE [Suspect]
     Indication: DRUG USE FOR UNKNOWN INDICATION
     Route: 048
     Dates: start: 19980415, end: 19980915

REACTIONS (13)
  - ARTHRALGIA [None]
  - BOWEL MOVEMENT IRREGULARITY [None]
  - COLITIS ULCERATIVE [None]
  - CROHN'S DISEASE [None]
  - DEPRESSION [None]
  - ECONOMIC PROBLEM [None]
  - GASTROINTESTINAL INJURY [None]
  - HAEMORRHAGE [None]
  - INFLAMMATORY BOWEL DISEASE [None]
  - JOINT INJURY [None]
  - MUSCLE INJURY [None]
  - MYALGIA [None]
  - PAINFUL DEFAECATION [None]
